FAERS Safety Report 17982109 (Version 1)
Quarter: 2020Q3

REPORT INFORMATION
  Report Type: Spontaneous
  Country: RU (occurrence: RU)
  Receive Date: 20200706
  Receipt Date: 20200706
  Transmission Date: 20201103
  Serious: Yes (Death)
  Sender: FDA-Public Use
  Company Number: RU-BIOVITRUM-2020RU3458

PATIENT
  Age: 12 Month

DRUGS (2)
  1. CANAKINUMAB. [Suspect]
     Active Substance: CANAKINUMAB
     Dosage: 5 MG/KG
  2. ANAKINRA [Suspect]
     Active Substance: ANAKINRA
     Indication: BACILLE CALMETTE-GUERIN SCAR REACTIVATION

REACTIONS (2)
  - Bacterial sepsis [Fatal]
  - Off label use [Unknown]
